FAERS Safety Report 5567712-8 (Version None)
Quarter: 2007Q4

REPORT INFORMATION
  Report Type: 
  Country: None (occurrence: None)
  Receive Date: 20071214
  Receipt Date: 20071203
  Transmission Date: 20080405
  Serious: Yes (Other)
  Sender: FDA-Public Use
  Company Number: WAES 0712USA01272

PATIENT
  Age: 72 Year
  Sex: Male

DRUGS (2)
  1. PRINIVIL [Suspect]
     Dosage: 40 MG/BID/UNK
  2. TOPROL-XL [Concomitant]

REACTIONS (4)
  - AORTIC ANEURYSM [None]
  - CARDIAC OPERATION [None]
  - CAROTID ARTERY OCCLUSION [None]
  - POST PROCEDURAL COMPLICATION [None]
